FAERS Safety Report 9310534 (Version 5)
Quarter: 2013Q3

REPORT INFORMATION
  Report Type: Spontaneous
  Country: US (occurrence: US)
  Receive Date: 20130527
  Receipt Date: 20130802
  Transmission Date: 20140515
  Serious: No
  Sender: FDA-Public Use
  Company Number: US-PFIZER INC-2013161036

PATIENT
  Age: 41 Year
  Sex: Male
  Weight: 118 kg

DRUGS (9)
  1. EFFEXOR XR [Suspect]
     Indication: DEPRESSION
     Dosage: 75 MG, 1X/DAY
     Route: 048
     Dates: start: 20130501, end: 2013
  2. EFFEXOR XR [Suspect]
     Indication: ANXIETY DISORDER
     Dosage: 37.5 MG, UNK
     Route: 048
     Dates: start: 2013, end: 20130611
  3. EFFEXOR XR [Suspect]
     Indication: PANIC ATTACK
  4. EFFEXOR XR [Suspect]
     Indication: PANIC DISORDER
  5. NEURONTIN [Concomitant]
     Indication: NEUROPATHY PERIPHERAL
     Dosage: 1200 MG, 3X/DAY
     Dates: start: 2011
  6. NEURONTIN [Concomitant]
     Indication: FIBROMYALGIA
  7. NORCO [Concomitant]
     Indication: FIBROMYALGIA
     Dosage: HYDROCODONE BITARTRATE (10 MG), PARACETAMOL (325 MG), FOUR TIMES A DAY
  8. NORCO [Concomitant]
     Indication: OSTEOARTHRITIS
  9. NORCO [Concomitant]
     Indication: BACK DISORDER

REACTIONS (7)
  - Visual impairment [Recovering/Resolving]
  - Lethargy [Recovering/Resolving]
  - Fatigue [Recovering/Resolving]
  - Pain [Recovering/Resolving]
  - Drug intolerance [Unknown]
  - Anxiety [Recovered/Resolved]
  - Wrong technique in drug usage process [Unknown]
